FAERS Safety Report 12139059 (Version 2)
Quarter: 2016Q4

REPORT INFORMATION
  Report Type: Spontaneous
  Country: US (occurrence: US)
  Receive Date: 20160302
  Receipt Date: 20161219
  Transmission Date: 20170207
  Serious: Yes (Other)
  Sender: FDA-Public Use
  Company Number: US-ELI_LILLY_AND_COMPANY-US201602009362

PATIENT
  Age: 64 Year
  Sex: Male
  Weight: 101 kg

DRUGS (2)
  1. CYMBALTA [Suspect]
     Active Substance: DULOXETINE HYDROCHLORIDE
     Indication: PAIN
     Dosage: UNK, UNKNOWN
     Route: 048
  2. CYMBALTA [Suspect]
     Active Substance: DULOXETINE HYDROCHLORIDE
     Indication: DEPRESSION
     Dosage: 90 MG, QD
     Route: 048
     Dates: start: 20121014, end: 2013

REACTIONS (19)
  - Agitation [Unknown]
  - Headache [Unknown]
  - Mood swings [Unknown]
  - Seizure [Unknown]
  - Irritability [Unknown]
  - Sensory disturbance [Unknown]
  - Withdrawal syndrome [Unknown]
  - Hallucination [Unknown]
  - Influenza like illness [Unknown]
  - Affect lability [Unknown]
  - Disturbance in attention [Unknown]
  - Arthralgia [Unknown]
  - Fatigue [Unknown]
  - Paraesthesia [Unknown]
  - Diarrhoea [Unknown]
  - Photopsia [Unknown]
  - Nausea [Unknown]
  - Tremor [Unknown]
  - Pain [Unknown]

NARRATIVE: CASE EVENT DATE: 2013
